FAERS Safety Report 8185912-8 (Version None)
Quarter: 2012Q1

REPORT INFORMATION
  Report Type: 
  Country: None (occurrence: None)
  Receive Date: 20120305
  Receipt Date: 20120223
  Transmission Date: 20120608
  Serious: Yes (Hospitalization)
  Sender: FDA-Public Use
  Company Number: JP-ASTRAZENECA-2011SE41175

PATIENT
  Age: 20 Year
  Sex: Female

DRUGS (4)
  1. SEROQUEL [Suspect]
     Route: 048
  2. ANTI SLEEP DRUG CONTAINING CAFFEINE [Suspect]
     Route: 048
  3. MAGNESIUM SULFATE [Concomitant]
     Route: 048
  4. SEROQUEL [Suspect]
     Dosage: LARGE DOSE
     Route: 048
     Dates: start: 20110601

REACTIONS (7)
  - SHOCK [None]
  - UPPER GASTROINTESTINAL HAEMORRHAGE [None]
  - CONTINUOUS HAEMODIAFILTRATION [None]
  - MULTIPLE DRUG OVERDOSE INTENTIONAL [None]
  - NEUROLEPTIC MALIGNANT SYNDROME [None]
  - SUICIDE ATTEMPT [None]
  - ANURIA [None]
